FAERS Safety Report 6167331-9 (Version None)
Quarter: 2009Q2

REPORT INFORMATION
  Report Type: 
  Country: None (occurrence: None)
  Receive Date: 20090424
  Receipt Date: 20090415
  Transmission Date: 20091009
  Serious: Yes (Hospitalization)
  Sender: FDA-Public Use
  Company Number: US-WYE-H08963209

PATIENT
  Age: 55 Year
  Sex: Male

DRUGS (4)
  1. TORISEL [Suspect]
     Indication: RENAL CELL CARCINOMA
     Dosage: 37.5 MG OVER 30 MINUTES ON DAYS 8, 15, AND 22
     Route: 042
     Dates: start: 20090301, end: 20090324
  2. IBUPROFEN [Suspect]
     Dosage: UNKNOWN
  3. ALTACE [Suspect]
     Dosage: UNKNOWN
  4. TYLENOL [Suspect]
     Dosage: UNKNOWN
     Dates: end: 20090317

REACTIONS (1)
  - RENAL FAILURE [None]
